FAERS Safety Report 8984502 (Version 1)
Quarter: 2012Q4

REPORT INFORMATION
  Report Type: 
  Country: SI (occurrence: SI)
  Receive Date: 20121226
  Receipt Date: 20121226
  Transmission Date: 20130627
  Serious: Yes (Other)
  Sender: FDA-Public Use
  Company Number: SI-UCBSA-073819

PATIENT
  Age: 55 Year
  Sex: Female
  Weight: 67 kg

DRUGS (4)
  1. CIMZIA [Suspect]
     Route: 058
     Dates: start: 20110705, end: 2012
  2. FOLACIN [Concomitant]
  3. METOTREKSAT [Concomitant]
     Dosage: ONCE A WEEK
  4. NAPROSYN [Concomitant]

REACTIONS (1)
  - Herpes zoster [Recovering/Resolving]
